FAERS Safety Report 7819662-1 (Version None)
Quarter: 2011Q4

REPORT INFORMATION
  Report Type: 
  Country: None (occurrence: None)
  Receive Date: 20111013
  Receipt Date: 20110927
  Transmission Date: 20120403
  Serious: Yes (Death, Hospitalization)
  Sender: FDA-Public Use
  Company Number: BACL20110009

PATIENT
  Age: 39 Year
  Sex: Male

DRUGS (2)
  1. BACLOFEN [Suspect]
     Dosage: 50 UG, INTRATHECAL
     Route: 037
  2. BACLOFEN [Suspect]
     Indication: MUSCLE SPASTICITY
     Dosage: 100 MG, 1 IN 1 D, ORAL ; 75 MG, 1 IN 1 D, ORAL
     Route: 048

REACTIONS (3)
  - BUNDLE BRANCH BLOCK RIGHT [None]
  - CARDIAC ARREST [None]
  - BRADYCARDIA [None]
